FAERS Safety Report 14946856 (Version 2)
Quarter: 2018Q3

REPORT INFORMATION
  Report Type: Report from Study
  Country: JP (occurrence: JP)
  Receive Date: 20180529
  Receipt Date: 20180719
  Transmission Date: 20181010
  Serious: Yes (Death, Life-Threatening, Hospitalization, Other)
  Sender: FDA-Public Use
  Company Number: JP-009507513-1805JPN002659J

PATIENT
  Age: 65 Year
  Sex: Male
  Weight: 67 kg

DRUGS (8)
  1. DAIKENCHUTO [Concomitant]
     Active Substance: HERBALS
     Indication: CONSTIPATION
  2. TRAMAL [Concomitant]
     Active Substance: TRAMADOL
     Indication: PAIN
     Dosage: 2.5 MG, BID
     Route: 048
     Dates: start: 20171227, end: 20180321
  3. NEXIUM [Concomitant]
     Active Substance: ESOMEPRAZOLE MAGNESIUM
     Indication: PROPHYLAXIS AGAINST GASTROINTESTINAL ULCER
     Dosage: 20 MG, QD
     Route: 048
     Dates: start: 20171017, end: 20180321
  4. KALIMATE [Concomitant]
     Active Substance: CALCIUM POLYSTYRENE SULFONATE
     Indication: HYPERKALAEMIA
     Dosage: 5 G, QD
     Route: 048
     Dates: start: 20170607, end: 20180321
  5. ETODOLAC. [Concomitant]
     Active Substance: ETODOLAC
     Indication: PAIN
     Dosage: 200 MG, BID
     Route: 048
     Dates: start: 20171017, end: 20180321
  6. KEYTRUDA [Suspect]
     Active Substance: PEMBROLIZUMAB
     Indication: TRANSITIONAL CELL CARCINOMA
     Dosage: 200 MG, ONCE
     Route: 041
     Dates: start: 20180123, end: 20180123
  7. KEYTRUDA [Suspect]
     Active Substance: PEMBROLIZUMAB
     Dosage: 200 MG, ONCE
     Route: 041
     Dates: start: 20180313, end: 20180313
  8. DAIKENCHUTO [Concomitant]
     Active Substance: HERBALS
     Indication: PROPHYLAXIS
     Dosage: 5 G, TID
     Route: 048
     Dates: start: 20160219, end: 20180321

REACTIONS (7)
  - Intestinal obstruction [Not Recovered/Not Resolved]
  - Death [Fatal]
  - Anaemia [Not Recovered/Not Resolved]
  - Pyelonephritis [Recovered/Resolved]
  - Intestinal obstruction [Recovered/Resolved]
  - Pleural effusion [Fatal]
  - Hyperkalaemia [Not Recovered/Not Resolved]

NARRATIVE: CASE EVENT DATE: 20180209
